FAERS Safety Report 19349655 (Version 1)
Quarter: 2021Q2

REPORT INFORMATION
  Report Type: Spontaneous
  Country: US (occurrence: US)
  Receive Date: 20210531
  Receipt Date: 20210531
  Transmission Date: 20210717
  Serious: No
  Sender: FDA-Public Use
  Company Number: US-SA-2021SA174936

PATIENT
  Age: 17 Year
  Sex: Male

DRUGS (1)
  1. CABLIVI [Suspect]
     Active Substance: CAPLACIZUMAB-YHDP
     Indication: THROMBOTIC MICROANGIOPATHY
     Dosage: 11 MG, QD
     Route: 058
     Dates: start: 20210501

REACTIONS (13)
  - Mean cell volume abnormal [Unknown]
  - Alanine aminotransferase abnormal [Unknown]
  - Red cell distribution width abnormal [Unknown]
  - Blood glucose abnormal [Unknown]
  - Granulocytes abnormal [Unknown]
  - Reticulocyte count abnormal [Unknown]
  - Haemoglobin abnormal [Unknown]
  - Lymphocyte percentage abnormal [Unknown]
  - Blood lactate dehydrogenase abnormal [Unknown]
  - Von Willebrand^s factor antigen abnormal [Unknown]
  - Red blood cell count abnormal [Unknown]
  - Haematocrit abnormal [Unknown]
  - Mean cell haemoglobin concentration abnormal [Unknown]
